FAERS Safety Report 6992137-8 (Version None)
Quarter: 2010Q3

REPORT INFORMATION
  Report Type: 
  Country: None (occurrence: None)
  Receive Date: 20100917
  Receipt Date: 20100909
  Transmission Date: 20110219
  Serious: Yes (Hospitalization)
  Sender: FDA-Public Use
  Company Number: SE-B.I. PHARMACEUTICALS,INC./RIDGEFIELD-2010-SW-00266SW

PATIENT
  Sex: Female

DRUGS (12)
  1. COMBIVENT [Suspect]
     Dosage: STRENGTH: 0,5MG/2,5MG.
     Dates: start: 20100709
  2. IMUREL [Suspect]
     Dosage: 200 MG
     Dates: start: 20080317, end: 20100707
  3. BEHEPAN [Concomitant]
  4. BRICANYL TURBOHALER [Concomitant]
  5. DOXYFERM [Concomitant]
  6. SPIRIVA [Concomitant]
  7. SERETIDE DISKUS [Concomitant]
  8. LORATADINE [Concomitant]
  9. FOLACIN [Concomitant]
  10. ALENDRONATE SODIUM [Concomitant]
  11. KALCIPOS [Concomitant]
  12. ANTABUSE [Concomitant]

REACTIONS (2)
  - HYPOKALAEMIA [None]
  - NEUTROPENIA [None]
